FAERS Safety Report 16588299 (Version 2)
Quarter: 2019Q3

REPORT INFORMATION
  Report Type: Spontaneous
  Country: US (occurrence: US)
  Receive Date: 20190717
  Receipt Date: 20190725
  Transmission Date: 20191004
  Serious: No
  Sender: FDA-Public Use
  Company Number: US-AMGEN INC.-USASP2019112818

PATIENT
  Sex: Female

DRUGS (1)
  1. AIMOVIG [Suspect]
     Active Substance: ERENUMAB-AOOE
     Indication: MIGRAINE
     Dosage: 140 MILLIGRAM (2 X70MG)
     Route: 065
     Dates: start: 201810

REACTIONS (2)
  - Rash erythematous [Unknown]
  - Swelling face [Unknown]

NARRATIVE: CASE EVENT DATE: 20190704
